FAERS Safety Report 8836114 (Version 2)
Quarter: 2012Q4

REPORT INFORMATION
  Report Type: Report from Study
  Country: CA (occurrence: CA)
  Receive Date: 20121011
  Receipt Date: 20121015
  Transmission Date: 20130627
  Serious: Yes (Hospitalization, Other)
  Sender: FDA-Public Use
  Company Number: CA-ABBOTT-12P-028-0991015-00

PATIENT
  Age: 46 None
  Sex: Male
  Weight: 69.92 kg

DRUGS (2)
  1. HUMIRA [Suspect]
     Indication: CROHN^S DISEASE
     Route: 058
     Dates: start: 20111028, end: 20120622
  2. CORTISONE [Concomitant]
     Indication: CROHN^S DISEASE
     Route: 048

REACTIONS (10)
  - Gastrointestinal inflammation [Recovered/Resolved]
  - Somnolence [Recovered/Resolved]
  - Peritonitis [Recovered/Resolved]
  - Drug ineffective [Not Recovered/Not Resolved]
  - Gastrointestinal anastomotic leak [Recovered/Resolved]
  - Gastrointestinal infection [Recovered/Resolved]
  - Blood iron decreased [Recovered/Resolved]
  - Protein total decreased [Recovered/Resolved]
  - Blood albumin decreased [Recovered/Resolved]
  - Gastrointestinal toxicity [Unknown]
